FAERS Safety Report 20107891 (Version 1)
Quarter: 2021Q4

REPORT INFORMATION
  Report Type: Spontaneous
  Country: US (occurrence: US)
  Receive Date: 20211124
  Receipt Date: 20211124
  Transmission Date: 20220303
  Serious: No
  Sender: FDA-Public Use
  Company Number: US-PERRIGO-21US007288

PATIENT
  Age: 2 Year
  Sex: Female
  Weight: 18.141 kg

DRUGS (1)
  1. POLYETHYLENE GLYCOL 3350 [Suspect]
     Active Substance: POLYETHYLENE GLYCOL 3350
     Indication: Constipation
     Dosage: 1 TABLESPOON, QD
     Route: 048
     Dates: start: 201811

REACTIONS (2)
  - Incorrect product administration duration [Not Recovered/Not Resolved]
  - Product administered to patient of inappropriate age [Not Recovered/Not Resolved]

NARRATIVE: CASE EVENT DATE: 20181101
